FAERS Safety Report 14448731 (Version 1)
Quarter: 2018Q1

REPORT INFORMATION
  Report Type: Spontaneous
  Country: US (occurrence: US)
  Receive Date: 20180126
  Receipt Date: 20180126
  Transmission Date: 20180509
  Serious: Yes (Other)
  Sender: FDA-Public Use
  Company Number: US-DSJP-DSU-2017-146954

PATIENT

DRUGS (1)
  1. BENICAR [Suspect]
     Active Substance: OLMESARTAN MEDOXOMIL
     Indication: HYPERTENSION
     Dosage: UNK
     Dates: start: 20081217, end: 20130506

REACTIONS (6)
  - Gastrooesophageal reflux disease [Unknown]
  - Diverticulitis [Unknown]
  - Sprue-like enteropathy [Recovered/Resolved]
  - Hiatus hernia [Unknown]
  - Large intestine polyp [Recovered/Resolved]
  - Diverticulum intestinal [Unknown]

NARRATIVE: CASE EVENT DATE: 20081210
